FAERS Safety Report 15256999 (Version 2)
Quarter: 2018Q3

REPORT INFORMATION
  Report Type: Spontaneous
  Country: US (occurrence: US)
  Receive Date: 20180808
  Receipt Date: 20180813
  Transmission Date: 20181010
  Serious: Yes (Other)
  Sender: FDA-Public Use
  Company Number: US-SUNOVION-2018SUN003060

PATIENT
  Age: 63 Year
  Sex: Female
  Weight: 52.15 kg

DRUGS (6)
  1. VALIUM [Concomitant]
     Active Substance: DIAZEPAM
     Indication: INTENTIONAL SELF-INJURY
  2. LATUDA [Suspect]
     Active Substance: LURASIDONE HYDROCHLORIDE
     Indication: BIPOLAR DISORDER
     Dosage: 120 MG, QD
     Route: 048
  3. WELLBUTRIN [Concomitant]
     Active Substance: BUPROPION HYDROCHLORIDE
     Dosage: 450 MG, QD
     Route: 048
  4. LAMICTAL [Concomitant]
     Active Substance: LAMOTRIGINE
     Dosage: 200 MG, QD
     Route: 048
  5. VALIUM [Concomitant]
     Active Substance: DIAZEPAM
     Indication: CRYING
     Dosage: 120 MG, UNK
     Route: 048
  6. TRILEPTAL [Suspect]
     Active Substance: OXCARBAZEPINE
     Dosage: UNK
     Route: 065

REACTIONS (21)
  - Rectal haemorrhage [Unknown]
  - Depression [Not Recovered/Not Resolved]
  - Crying [Not Recovered/Not Resolved]
  - Intentional self-injury [Not Recovered/Not Resolved]
  - Cognitive disorder [Not Recovered/Not Resolved]
  - Abulia [Not Recovered/Not Resolved]
  - Aphasia [Unknown]
  - Asthenia [Not Recovered/Not Resolved]
  - Quality of life decreased [Not Recovered/Not Resolved]
  - Nausea [Unknown]
  - Abnormal behaviour [Unknown]
  - Paranoia [Unknown]
  - Haemorrhage [Unknown]
  - Confusional state [Not Recovered/Not Resolved]
  - Disturbance in attention [Not Recovered/Not Resolved]
  - Personality disorder [Unknown]
  - Speech disorder [Unknown]
  - Personality change [Not Recovered/Not Resolved]
  - Apathy [Not Recovered/Not Resolved]
  - Emotional distress [Not Recovered/Not Resolved]
  - Feeling abnormal [Not Recovered/Not Resolved]

NARRATIVE: CASE EVENT DATE: 201807
